FAERS Safety Report 15227263 (Version 1)
Quarter: 2018Q3

REPORT INFORMATION
  Report Type: Spontaneous
  Country: CA (occurrence: CA)
  Receive Date: 20180801
  Receipt Date: 20180801
  Transmission Date: 20181010
  Serious: Yes (Hospitalization, Disabling, Other)
  Sender: FDA-Public Use
  Company Number: CA-JNJFOC-20180731609

PATIENT
  Age: 36 Year
  Sex: Male
  Weight: 89 kg

DRUGS (3)
  1. ROSUVASTATIN. [Concomitant]
     Active Substance: ROSUVASTATIN
     Route: 065
  2. INVOKANA [Suspect]
     Active Substance: CANAGLIFLOZIN
     Indication: TYPE 2 DIABETES MELLITUS
     Route: 048
  3. JANUMET [Concomitant]
     Active Substance: METFORMIN HYDROCHLORIDE\SITAGLIPTIN PHOSPHATE
     Route: 065

REACTIONS (10)
  - Platelet count abnormal [Recovering/Resolving]
  - Blood bicarbonate decreased [Recovering/Resolving]
  - Dehydration [Recovering/Resolving]
  - Urine ketone body present [Recovering/Resolving]
  - Blood sodium abnormal [Recovering/Resolving]
  - Acidosis [Recovering/Resolving]
  - Oxygen therapy [Recovering/Resolving]
  - Haemoglobin abnormal [Recovering/Resolving]
  - Blood creatine abnormal [Recovering/Resolving]
  - Urine output decreased [Recovering/Resolving]
